FAERS Safety Report 21968795 (Version 4)
Quarter: 2023Q1

REPORT INFORMATION
  Report Type: Report from Study
  Country: US (occurrence: US)
  Receive Date: 20230208
  Receipt Date: 20230328
  Transmission Date: 20230418
  Serious: Yes (Other)
  Sender: FDA-Public Use
  Company Number: US-PFIZER INC-PV202200129263

PATIENT
  Age: 61 Year
  Sex: Male
  Weight: 84.354 kg

DRUGS (18)
  1. BINIMETINIB [Suspect]
     Active Substance: BINIMETINIB
     Indication: Rectal cancer
     Dosage: 30.0 MILLIGRAM(S) (15 MILLIGRAM(S), 1 IN 12 HOUR)
     Route: 048
     Dates: start: 20221123, end: 20221207
  2. BINIMETINIB [Suspect]
     Active Substance: BINIMETINIB
     Dosage: UNK
     Route: 048
     Dates: start: 20221220
  3. FUTIBATINIB [Suspect]
     Active Substance: FUTIBATINIB
     Indication: Rectal cancer
     Dosage: 16.0 MILLIGRAM(S) (16 MILLIGRAM(S), 1 IN 1 DAY)
     Route: 048
     Dates: start: 20221116, end: 20221207
  4. FUTIBATINIB [Suspect]
     Active Substance: FUTIBATINIB
     Dosage: 16.0 MILLIGRAM(S) (16 MILLIGRAM(S), 1 IN 1 DAY)
     Route: 048
     Dates: start: 20221220
  5. PROCHLORPERAZINE [Concomitant]
     Active Substance: PROCHLORPERAZINE
     Indication: Nausea
     Dosage: 10 MG, 4X/DAY (40.0 MILLIGRAM(S) (10 MILLIGRAM(S), 1 IN 6 HOUR))
     Route: 048
     Dates: start: 20221123
  6. ONDANSETRON [Concomitant]
     Active Substance: ONDANSETRON
     Indication: Nausea
     Dosage: 8 MG, 3X/DAY (24.0 MILLIGRAM(S) (8 MILLIGRAM(S), 1 IN 8 HOUR))
     Route: 048
     Dates: start: 20221116
  7. OXYCODONE [Concomitant]
     Active Substance: OXYCODONE
     Indication: Pain
     Dosage: 5 MG, EVERY 4 HRS (30.0 MILLIGRAM(S) (5 MILLIGRAM(S), 1 IN 4 HOUR))
     Route: 048
  8. OXYCODONE [Concomitant]
     Active Substance: OXYCODONE
     Dosage: 15 MG, 3X/DAY (45.0 MILLIGRAM(S) (15 MILLIGRAM(S), 1 IN 8 HOUR))
     Route: 048
     Dates: start: 20221110
  9. TRAZODONE [Concomitant]
     Active Substance: TRAZODONE HYDROCHLORIDE
     Indication: Insomnia
     Dosage: 50.0 MILLIGRAM(S) (50 MILLIGRAM(S), 1 IN 1 DAY)
     Route: 048
     Dates: start: 20221010
  10. ATORVASTATIN [Concomitant]
     Active Substance: ATORVASTATIN
     Indication: Blood cholesterol increased
     Dosage: 20.0 MILLIGRAM(S) (20 MILLIGRAM(S), 1 IN 1 DAY)
     Route: 048
     Dates: start: 20220930
  11. CALCIUM\CHOLECALCIFEROL [Concomitant]
     Active Substance: CALCIUM\CHOLECALCIFEROL
     Indication: Vitamin supplementation
     Dosage: 1 IN 1 DAY
     Route: 048
     Dates: start: 20220928
  12. DULOXETINE [Concomitant]
     Active Substance: DULOXETINE
     Indication: Depression
     Dosage: 60.0 MILLIGRAM(S) (60 MILLIGRAM(S), 1 IN 1 DAY)
     Route: 048
     Dates: start: 20220707
  13. DULOXETINE [Concomitant]
     Active Substance: DULOXETINE
     Indication: Anxiety
  14. PANTOPRAZOLE [Concomitant]
     Active Substance: PANTOPRAZOLE
     Indication: Dyspepsia
     Dosage: 40.0 MILLIGRAM(S) (40 MILLIGRAM(S), 1 IN 1 DAY)
     Route: 048
     Dates: start: 20220701
  15. LOPERAMIDE [Concomitant]
     Active Substance: LOPERAMIDE
     Indication: Diarrhoea
     Dosage: 2 MILLIGRAM(S)
     Route: 048
     Dates: start: 20211123
  16. MIRABEGRON [Concomitant]
     Active Substance: MIRABEGRON
     Indication: Hypertonic bladder
     Dosage: 50.0 MILLIGRAM(S) (50 MILLIGRAM(S), 1 IN 1 DAY)
     Route: 048
     Dates: start: 20211021
  17. TAMSULOSIN [Concomitant]
     Active Substance: TAMSULOSIN
     Indication: Bladder disorder
     Dosage: 4.0 MILLIGRAM(S) (4 MILLIGRAM(S), 1 IN 1 DAY)
     Route: 048
     Dates: start: 20211004
  18. DOCUSATE SODIUM [Concomitant]
     Active Substance: DOCUSATE SODIUM
     Indication: Constipation
     Dosage: 100 MG, 2X/DAY (200.0 MILLIGRAM(S) (100 MILLIGRAM(S), 1 IN 12 HOUR))
     Route: 048
     Dates: start: 20210922

REACTIONS (3)
  - Overdose [Recovered/Resolved]
  - Hyperphosphataemia [Recovered/Resolved]
  - Alanine aminotransferase increased [Recovered/Resolved]

NARRATIVE: CASE EVENT DATE: 20221207
